FAERS Safety Report 18049187 (Version 1)
Quarter: 2020Q3

REPORT INFORMATION
  Report Type: Spontaneous
  Country: JP (occurrence: JP)
  Receive Date: 20200721
  Receipt Date: 20200721
  Transmission Date: 20201103
  Serious: Yes (Death, Hospitalization, Other)
  Sender: FDA-Public Use
  Company Number: JP-AMNEAL PHARMACEUTICALS-2020-AMRX-02034

PATIENT
  Age: 66 Year
  Sex: Female

DRUGS (5)
  1. MYCOPHENOLATE MOFETIL. [Suspect]
     Active Substance: MYCOPHENOLATE MOFETIL
     Indication: SYSTEMIC LUPUS ERYTHEMATOSUS
     Dosage: UNK
     Route: 065
  2. ALBENZA [Suspect]
     Active Substance: ALBENDAZOLE
     Indication: STRONGYLOIDIASIS
     Dosage: 400 MILLIGRAM, DAILY
     Route: 065
  3. IVERMECTIN. [Suspect]
     Active Substance: IVERMECTIN
     Indication: STRONGYLOIDIASIS
     Dosage: 200 MICROGRAM/KILOGRAM, DAILY
     Route: 065
  4. PREDNISOLONE. [Suspect]
     Active Substance: PREDNISOLONE
     Indication: SYSTEMIC LUPUS ERYTHEMATOSUS
     Dosage: HIGH DOSE
     Route: 042
  5. TACROLIMUS. [Suspect]
     Active Substance: TACROLIMUS
     Indication: SYSTEMIC LUPUS ERYTHEMATOSUS
     Dosage: UNK
     Route: 065

REACTIONS (23)
  - Abdominal tenderness [Recovering/Resolving]
  - Gastrointestinal erosion [Recovering/Resolving]
  - Nausea [Unknown]
  - Lung infiltration [Unknown]
  - CSF protein increased [Unknown]
  - Drug ineffective [Unknown]
  - Procalcitonin increased [Unknown]
  - Blood alkaline phosphatase increased [Unknown]
  - Altered state of consciousness [Unknown]
  - Abdominal pain [Recovering/Resolving]
  - Strongyloidiasis [Fatal]
  - Lung opacity [Unknown]
  - Pulmonary mass [Unknown]
  - Immune reconstitution inflammatory syndrome [Unknown]
  - Cytomegalovirus enteritis [Fatal]
  - Oedema peripheral [Unknown]
  - C-reactive protein increased [Unknown]
  - Gastrointestinal wall thickening [Recovering/Resolving]
  - Gastric mucosa erythema [Recovering/Resolving]
  - Gastrointestinal oedema [Recovering/Resolving]
  - CSF cell count increased [Unknown]
  - Thrombocytopenia [Unknown]
  - Respiratory disorder [Unknown]
